FAERS Safety Report 8520830 (Version 4)
Quarter: 2013Q4

REPORT INFORMATION
  Report Type: Spontaneous
  Country: US (occurrence: US)
  Receive Date: 20120419
  Receipt Date: 20131204
  Transmission Date: 20140711
  Serious: No
  Sender: FDA-Public Use
  Company Number: US-ASTRAZENECA-2011SE41551

PATIENT
  Age: 61 Year
  Sex: Female
  Weight: 90.7 kg

DRUGS (39)
  1. NEXIUM [Suspect]
     Indication: HIATUS HERNIA
     Route: 048
  2. NEXIUM [Suspect]
     Indication: GASTROOESOPHAGEAL REFLUX DISEASE
     Route: 048
  3. NEXIUM [Suspect]
     Indication: GASTROOESOPHAGEAL REFLUX DISEASE
     Route: 048
  4. NEXIUM [Suspect]
     Indication: HIATUS HERNIA
     Dosage: TWICE A DAY
     Route: 048
     Dates: start: 2001
  5. NEXIUM [Suspect]
     Indication: GASTROOESOPHAGEAL REFLUX DISEASE
     Dosage: TWICE A DAY
     Route: 048
     Dates: start: 2001
  6. NEXIUM [Suspect]
     Indication: GASTROOESOPHAGEAL REFLUX DISEASE
     Dosage: TWICE A DAY
     Route: 048
     Dates: start: 2001
  7. NEXIUM [Suspect]
     Indication: HIATUS HERNIA
     Route: 048
     Dates: start: 2001, end: 201112
  8. NEXIUM [Suspect]
     Indication: GASTROOESOPHAGEAL REFLUX DISEASE
     Route: 048
     Dates: start: 2001, end: 201112
  9. NEXIUM [Suspect]
     Indication: GASTROOESOPHAGEAL REFLUX DISEASE
     Route: 048
     Dates: start: 2001, end: 201112
  10. NEXIUM [Suspect]
     Indication: HIATUS HERNIA
     Route: 048
     Dates: start: 20050111
  11. NEXIUM [Suspect]
     Indication: GASTROOESOPHAGEAL REFLUX DISEASE
     Route: 048
     Dates: start: 20050111
  12. NEXIUM [Suspect]
     Indication: GASTROOESOPHAGEAL REFLUX DISEASE
     Route: 048
     Dates: start: 20050111
  13. ALKASELTZER [Concomitant]
     Dosage: AS NEEDED
  14. TUMS [Concomitant]
  15. OMNEPRAZOLE [Concomitant]
     Indication: HIATUS HERNIA
     Dates: start: 20061205
  16. OMNEPRAZOLE [Concomitant]
     Indication: GASTROOESOPHAGEAL REFLUX DISEASE
     Dates: start: 20061205
  17. VITAMINE D [Concomitant]
     Indication: VITAMIN D DEFICIENCY
  18. CALCIUM [Concomitant]
     Indication: VITAMIN D DEFICIENCY
  19. RANITIDINE [Concomitant]
  20. GLIMEPRIDE [Concomitant]
     Indication: DIABETES MELLITUS
     Dates: start: 20091006
  21. METFORMIN [Concomitant]
     Indication: DIABETES MELLITUS
     Dates: start: 20050124
  22. BENAZ [Concomitant]
     Indication: HYPERTENSION
  23. ALLEGRA [Concomitant]
     Indication: MULTIPLE ALLERGIES
     Dates: start: 20050131
  24. FEXOFENADINE HCL [Concomitant]
     Dates: start: 20051109
  25. LIPITOR [Concomitant]
     Dates: start: 20060620
  26. DIOVAN HCT [Concomitant]
     Dosage: 160-25M
     Dates: start: 20050525
  27. TRIM [Concomitant]
     Dosage: 800-160
     Dates: start: 20051018
  28. GLUCOPHAGE XR [Concomitant]
     Dates: start: 20050201
  29. CLIDINIUM/ CHLORDIAZE [Concomitant]
     Dosage: 2.5-5 MG
     Dates: start: 20050524
  30. FLUTICASONE PROPIONATE [Concomitant]
     Dates: start: 20091112
  31. BENAZEPRIL-HYDROCHLOROTHIAZIDE [Concomitant]
     Dosage: 20-12.5 MG
     Dates: start: 20091222
  32. BENZONATATE [Concomitant]
     Dates: start: 20100916
  33. BYETTA [Concomitant]
     Dosage: 5 UCG/0
     Dates: start: 20070208
  34. BYETTA [Concomitant]
     Dosage: 10 UCG/0
     Dates: start: 20070208
  35. PROMETHAZINE HCL [Concomitant]
     Dates: start: 20070301
  36. IBUPROFEN [Concomitant]
     Dates: start: 20080530
  37. FUROSEMIDE [Concomitant]
     Dates: start: 20080530
  38. SULFAMETHOXAZOLE-TRIMETHOPRIM [Concomitant]
     Dosage: 800-160 MG
     Dates: start: 20080903
  39. PANTOPRAZOLE SODIUM [Concomitant]
     Dates: start: 20081108

REACTIONS (8)
  - Osteoporosis [Unknown]
  - Bone density abnormal [Unknown]
  - Cataract [Unknown]
  - Diabetes mellitus [Unknown]
  - Fall [Unknown]
  - Joint injury [Unknown]
  - Lower limb fracture [Unknown]
  - Vitamin D deficiency [Unknown]
